FAERS Safety Report 4775756-9 (Version None)
Quarter: 2005Q3

REPORT INFORMATION
  Report Type: 
  Country: None (occurrence: None)
  Receive Date: 20050922
  Receipt Date: 20050915
  Transmission Date: 20060218
  Serious: Yes (Other)
  Sender: FDA-Public Use
  Company Number: US-BRISTOL-MYERS SQUIBB COMPANY-13112396

PATIENT

DRUGS (3)
  1. TEQUIN [Suspect]
     Indication: INFECTION
     Route: 042
  2. PREDNISONE [Concomitant]
  3. METHIONINE [Concomitant]

REACTIONS (1)
  - RESPIRATORY DISTRESS [None]
